FAERS Safety Report 24024780 (Version 2)
Quarter: 2024Q2

REPORT INFORMATION
  Report Type: Spontaneous
  Country: US (occurrence: US)
  Receive Date: 20240628
  Receipt Date: 20240628
  Transmission Date: 20240716
  Serious: No
  Sender: FDA-Public Use
  Company Number: US-ROCHE-3485272

PATIENT
  Age: 80 Year
  Sex: Female
  Weight: 56.25 kg

DRUGS (1)
  1. PHESGO [Suspect]
     Active Substance: HYALURONIDASE-ZZXF\PERTUZUMAB\TRASTUZUMAB
     Indication: Breast cancer metastatic
     Dosage: GIVEN OVER 5 MINUTES
     Route: 058
     Dates: start: 20230826

REACTIONS (9)
  - Fatigue [Unknown]
  - Hypoaesthesia [Not Recovered/Not Resolved]
  - Paraesthesia [Unknown]
  - Off label use [Unknown]
  - Headache [Unknown]
  - Diarrhoea [Unknown]
  - Thermal burn [Not Recovered/Not Resolved]
  - Cough [Recovered/Resolved]
  - Rhinorrhoea [Recovered/Resolved]

NARRATIVE: CASE EVENT DATE: 20230826
